FAERS Safety Report 8334125-5 (Version None)
Quarter: 2012Q2

REPORT INFORMATION
  Report Type: 
  Country: None (occurrence: None)
  Receive Date: 20120503
  Receipt Date: 20120501
  Transmission Date: 20120825
  Serious: Yes (Other)
  Sender: FDA-Public Use
  Company Number: US-PFIZER INC-2012107169

PATIENT
  Sex: Male
  Weight: 74.83 kg

DRUGS (3)
  1. CHANTIX [Suspect]
     Indication: SMOKING CESSATION THERAPY
     Dosage: 0.5 MG, 1X/DAY
     Route: 048
     Dates: start: 20120401, end: 20120401
  2. METHADONE [Concomitant]
     Indication: PAIN
     Dosage: UNK
  3. PERCOCET [Concomitant]
     Indication: PAIN
     Dosage: UNK

REACTIONS (17)
  - INSOMNIA [None]
  - WEIGHT DECREASED [None]
  - THROAT TIGHTNESS [None]
  - CARDIAC DISCOMFORT [None]
  - ABNORMAL BEHAVIOUR [None]
  - HALLUCINATION, VISUAL [None]
  - ASTHENIA [None]
  - SWELLING [None]
  - CONSTIPATION [None]
  - FEELING ABNORMAL [None]
  - PALPITATIONS [None]
  - HALLUCINATION [None]
  - PANIC ATTACK [None]
  - RASH [None]
  - CONVULSION [None]
  - EATING DISORDER [None]
  - LOGORRHOEA [None]
